FAERS Safety Report 9234526 (Version 1)
Quarter: 2013Q2

REPORT INFORMATION
  Report Type: Spontaneous
  Country: AT (occurrence: AT)
  Receive Date: 20130416
  Receipt Date: 20130416
  Transmission Date: 20140414
  Serious: Yes (Other)
  Sender: FDA-Public Use
  Company Number: AT-GLAXOSMITHKLINE-B0876471A

PATIENT
  Age: 37 Year
  Sex: Male
  Weight: 80 kg

DRUGS (1)
  1. AVAMYS [Suspect]
     Indication: NASAL OPERATION
     Dosage: 4SPR PER DAY
     Route: 045
     Dates: start: 20130121

REACTIONS (4)
  - Angle closure glaucoma [Unknown]
  - Intraocular pressure increased [Recovered/Resolved]
  - Vomiting [Unknown]
  - Visual acuity reduced [Unknown]
